FAERS Safety Report 10917545 (Version 3)
Quarter: 2015Q3

REPORT INFORMATION
  Report Type: Spontaneous
  Country: IT (occurrence: IT)
  Receive Date: 20150316
  Receipt Date: 20150706
  Transmission Date: 20151125
  Serious: Yes (Other)
  Sender: FDA-Public Use
  Company Number: IT-PFIZER INC-2015089711

PATIENT
  Age: 29 Year
  Sex: Female

DRUGS (6)
  1. NEURONTIN [Suspect]
     Active Substance: GABAPENTIN
     Indication: INTENTIONAL SELF-INJURY
     Dosage: UNK
     Route: 048
     Dates: start: 20150225, end: 20150225
  2. RIVOTRIL [Suspect]
     Active Substance: CLONAZEPAM
     Indication: INTENTIONAL SELF-INJURY
     Dosage: 2 UNK, UNK
     Route: 048
     Dates: start: 20150225, end: 20150225
  3. VENLAFAXINE HCL [Suspect]
     Active Substance: VENLAFAXINE HYDROCHLORIDE
     Indication: INTENTIONAL SELF-INJURY
     Dosage: 150 MG, TOTAL
     Route: 048
     Dates: start: 20150225, end: 20150225
  4. TOLEP [Suspect]
     Active Substance: OXCARBAZEPINE
     Indication: INTENTIONAL SELF-INJURY
     Dosage: 600 UNK, UNK
     Route: 048
     Dates: start: 20150225, end: 20150225
  5. VENLAFAXINE HCL [Suspect]
     Active Substance: VENLAFAXINE HYDROCHLORIDE
     Indication: BIPOLAR DISORDER
  6. TOLEP [Suspect]
     Active Substance: OXCARBAZEPINE
     Indication: BIPOLAR DISORDER

REACTIONS (3)
  - Breath sounds abnormal [Recovered/Resolved]
  - Intentional overdose [Unknown]
  - Intentional self-injury [Recovered/Resolved]

NARRATIVE: CASE EVENT DATE: 20150225
